FAERS Safety Report 4791893-7 (Version None)
Quarter: 2005Q4

REPORT INFORMATION
  Report Type: 
  Country: None (occurrence: None)
  Receive Date: 20051007
  Receipt Date: 20050922
  Transmission Date: 20060501
  Serious: Yes (Other)
  Sender: FDA-Public Use
  Company Number: GBWYE000522SEP05

PATIENT
  Sex: Male

DRUGS (1)
  1. ENBREL [Suspect]
     Indication: PSORIATIC ARTHROPATHY
     Dosage: UNKNOWN
     Dates: start: 20050401

REACTIONS (2)
  - ANXIETY [None]
  - MONONEUROPATHY MULTIPLEX [None]
